FAERS Safety Report 25940398 (Version 1)
Quarter: 2025Q4

REPORT INFORMATION
  Report Type: Spontaneous
  Country: AU (occurrence: AU)
  Receive Date: 20251020
  Receipt Date: 20251020
  Transmission Date: 20260118
  Serious: Yes (Other)
  Sender: SAMSUNG BIOEPIS
  Company Number: AU-SAMSUNG BIOEPIS-SB-2025-34528

PATIENT
  Sex: Male
  Weight: 68 kg

DRUGS (1)
  1. RENFLEXIS [Suspect]
     Active Substance: INFLIXIMAB-ABDA
     Indication: Crohn^s disease

REACTIONS (3)
  - Inflammatory bowel disease [Unknown]
  - Drug level decreased [Unknown]
  - Product use issue [Unknown]
